FAERS Safety Report 6635920-0 (Version None)
Quarter: 2010Q1

REPORT INFORMATION
  Report Type: 
  Country: None (occurrence: None)
  Receive Date: 20100316
  Receipt Date: 20100305
  Transmission Date: 20100710
  Serious: Yes (Other)
  Sender: FDA-Public Use
  Company Number: US-NOVOPROD-305390

PATIENT
  Sex: Male
  Weight: 77.098 kg

DRUGS (7)
  1. NOVOLOG [Suspect]
     Indication: TYPE 2 DIABETES MELLITUS
     Dosage: 20 IU, TID WITH MEALS
     Route: 058
     Dates: start: 20100101
  2. LANTUS [Concomitant]
     Indication: TYPE 2 DIABETES MELLITUS
     Dosage: 20 IU, QD
     Route: 058
  3. METFORMIN HCL [Concomitant]
     Indication: TYPE 2 DIABETES MELLITUS
     Dosage: UNK
  4. COUMADIN [Concomitant]
     Indication: DEEP VEIN THROMBOSIS
     Dosage: UNK
  5. PROZAC                             /00724401/ [Concomitant]
     Indication: ANXIETY
     Dosage: UNK
  6. WELLBUTRIN [Concomitant]
     Indication: DEPRESSION
     Dosage: UNK
  7. ZOCOR [Concomitant]
     Indication: BLOOD CHOLESTEROL INCREASED
     Dosage: UNK

REACTIONS (6)
  - AMNESIA [None]
  - BLOOD GLUCOSE DECREASED [None]
  - BLOOD GLUCOSE FLUCTUATION [None]
  - PAIN IN EXTREMITY [None]
  - ROAD TRAFFIC ACCIDENT [None]
  - VISUAL IMPAIRMENT [None]
